FAERS Safety Report 6627987-0 (Version None)
Quarter: 2010Q1

REPORT INFORMATION
  Report Type: 
  Country: None (occurrence: None)
  Receive Date: 20100311
  Receipt Date: 20090724
  Transmission Date: 20100710
  Serious: No
  Sender: FDA-Public Use
  Company Number: A0784031A

PATIENT
  Age: 54 Year
  Sex: Male

DRUGS (2)
  1. NICORETTE [Suspect]
     Dates: end: 20090511
  2. NICORETTE [Suspect]
     Dates: end: 20090511

REACTIONS (3)
  - ABDOMINAL DISCOMFORT [None]
  - DRUG ADMINISTRATION ERROR [None]
  - PRODUCT QUALITY ISSUE [None]
